FAERS Safety Report 7012605-2 (Version None)
Quarter: 2010Q3

REPORT INFORMATION
  Report Type: 
  Country: None (occurrence: None)
  Receive Date: 20100914
  Receipt Date: 20091201
  Transmission Date: 20110219
  Serious: Yes (Other)
  Sender: FDA-Public Use
  Company Number: 2009305062

PATIENT
  Sex: Female

DRUGS (1)
  1. CYTOTEC [Suspect]
     Indication: LABOUR INDUCTION

REACTIONS (3)
  - OFF LABEL USE [None]
  - SALPINGO-OOPHORECTOMY UNILATERAL [None]
  - UTERINE RUPTURE [None]
